FAERS Safety Report 9268360 (Version 2)
Quarter: 2013Q2

REPORT INFORMATION
  Report Type: Spontaneous
  Country: FR (occurrence: FR)
  Receive Date: 20130502
  Receipt Date: 20130502
  Transmission Date: 20140414
  Serious: Yes (Hospitalization, Other)
  Sender: FDA-Public Use
  Company Number: FR-UCBSA-082097

PATIENT
  Age: 23 Year
  Sex: Male

DRUGS (25)
  1. VIMPAT [Suspect]
     Indication: EPILEPSY
     Route: 048
     Dates: start: 20130211, end: 20130212
  2. VIMPAT [Suspect]
     Indication: EPILEPSY
     Route: 048
     Dates: start: 20130212, end: 20130320
  3. VIMPAT [Suspect]
     Indication: EPILEPSY
     Route: 048
     Dates: start: 20130321, end: 20130326
  4. XYLOCAINE VISQUESE [Suspect]
     Dosage: 1 INTAKE
     Route: 048
  5. RIVOTRIL [Suspect]
     Dosage: INJECTABLE AMPUOLE
     Route: 042
     Dates: start: 20130321, end: 20130325
  6. KEPPRA [Concomitant]
     Route: 048
     Dates: start: 20120605
  7. XATRAL [Concomitant]
     Route: 048
     Dates: start: 20130321
  8. DANTRIUM [Concomitant]
     Route: 048
     Dates: start: 20130218
  9. MOTILIUM [Concomitant]
     Route: 048
     Dates: start: 20130226
  10. LOVENOX [Concomitant]
     Route: 058
     Dates: start: 20130218
  11. FLECAINE [Concomitant]
     Route: 048
     Dates: start: 20130218
  12. VENTOLINE [Concomitant]
     Dosage: NEBULIZER
     Route: 055
     Dates: start: 20130219
  13. VENTOLINE [Concomitant]
     Dosage: DOSE INCREASED TO 1 DOSE EVERY 8 HOURS
     Route: 055
     Dates: start: 20130326
  14. SYMMETREL [Concomitant]
     Route: 048
     Dates: start: 20121228
  15. DEBRIDAT [Concomitant]
     Route: 048
     Dates: start: 20130117
  16. TRANSIPEG [Concomitant]
     Dates: start: 20130309
  17. INEXIUM [Concomitant]
     Route: 048
     Dates: start: 20120127
  18. LACTEOL [Concomitant]
     Dosage: SACHET
     Route: 048
     Dates: start: 20121015
  19. CONTALAX [Concomitant]
     Dosage: IF NEEDED
     Route: 048
     Dates: start: 20130309
  20. NORMACOL [Concomitant]
     Route: 054
     Dates: start: 20130307
  21. SOLUMEDROL [Concomitant]
     Dosage: DOSE 6OMG EVERY 12 HOURS
     Route: 042
     Dates: start: 20130322, end: 20130326
  22. SONDALIS [Concomitant]
     Dosage: GASTRO ENTERAL ACCESS, 1/2 BAGS 4 TIMES A DAY
     Dates: start: 20130214
  23. A CERUMEN [Concomitant]
     Dosage: 1 DOSE ON MORNING
     Route: 001
     Dates: start: 20120712
  24. ATARAX [Concomitant]
     Route: 042
     Dates: start: 20130323, end: 20130323
  25. ATARAX [Concomitant]
     Route: 048
     Dates: start: 20130325, end: 20130416

REACTIONS (4)
  - Angioedema [Recovered/Resolved]
  - Myoclonus [Unknown]
  - Drug withdrawal syndrome [None]
  - Musculoskeletal stiffness [None]
